FAERS Safety Report 17590320 (Version 1)
Quarter: 2020Q1

REPORT INFORMATION
  Report Type: Spontaneous
  Country: US (occurrence: US)
  Receive Date: 20200326
  Receipt Date: 20200326
  Transmission Date: 20200409
  Serious: No
  Sender: FDA-Public Use
  Company Number: None

PATIENT
  Age: 86 Year
  Sex: Female
  Weight: 49.05 kg

DRUGS (15)
  1. FERROUS SULFATE. [Concomitant]
     Active Substance: FERROUS SULFATE
  2. METOPROLOL. [Concomitant]
     Active Substance: METOPROLOL
  3. SYMBICORT [Concomitant]
     Active Substance: BUDESONIDE\FORMOTEROL FUMARATE DIHYDRATE
  4. ASPIRIN. [Concomitant]
     Active Substance: ASPIRIN
  5. LISINOPRIL. [Concomitant]
     Active Substance: LISINOPRIL
  6. NITROSTAT [Concomitant]
     Active Substance: NITROGLYCERIN
  7. PREDNISONE. [Concomitant]
     Active Substance: PREDNISONE
  8. LASIX [Concomitant]
     Active Substance: FUROSEMIDE
  9. LEUKERAN [Suspect]
     Active Substance: CHLORAMBUCIL
     Indication: CHRONIC LYMPHOCYTIC LEUKAEMIA
     Route: 048
     Dates: start: 20200205, end: 20200326
  10. PRAVASTATIN. [Concomitant]
     Active Substance: PRAVASTATIN
  11. COLACE [Concomitant]
     Active Substance: DOCUSATE SODIUM
  12. ZOLOFT [Concomitant]
     Active Substance: SERTRALINE HYDROCHLORIDE
  13. OMEPRAZOLE. [Concomitant]
     Active Substance: OMEPRAZOLE
  14. TYLENOL [Concomitant]
     Active Substance: ACETAMINOPHEN
  15. VENTOLIN [Concomitant]
     Active Substance: ALBUTEROL SULFATE

REACTIONS (5)
  - Vomiting [None]
  - Diarrhoea [None]
  - Nervousness [None]
  - Tremor [None]
  - Asthenia [None]

NARRATIVE: CASE EVENT DATE: 20200326
